FAERS Safety Report 5663869-9 (Version None)
Quarter: 2008Q1

REPORT INFORMATION
  Report Type: 
  Country: None (occurrence: None)
  Receive Date: 20080314
  Receipt Date: 20080305
  Transmission Date: 20080703
  Serious: Yes (Other)
  Sender: FDA-Public Use
  Company Number: US-TEVA-168512USA

PATIENT
  Sex: Male

DRUGS (1)
  1. AZILECT [Suspect]
     Dates: start: 20060101

REACTIONS (1)
  - COMA [None]
